FAERS Safety Report 6197464-2 (Version None)
Quarter: 2009Q2

REPORT INFORMATION
  Report Type: 
  Country: None (occurrence: None)
  Receive Date: 20090521
  Receipt Date: 20090406
  Transmission Date: 20091009
  Serious: No
  Sender: FDA-Public Use
  Company Number: US-TEVA-191058USA

PATIENT
  Sex: Male

DRUGS (1)
  1. AZILECT [Suspect]

REACTIONS (4)
  - ARTHROPATHY [None]
  - DYSARTHRIA [None]
  - GAIT DISTURBANCE [None]
  - MOVEMENT DISORDER [None]
